FAERS Safety Report 8023935-X (Version None)
Quarter: 2012Q1

REPORT INFORMATION
  Report Type: 
  Country: None (occurrence: None)
  Receive Date: 20120105
  Receipt Date: 20120104
  Transmission Date: 20120608
  Serious: Yes (Other)
  Sender: FDA-Public Use
  Company Number: US-PFIZER INC-2012002459

PATIENT
  Sex: Female
  Weight: 61.678 kg

DRUGS (2)
  1. ATORVASTATIN CALCIUM [Suspect]
     Indication: BLOOD CHOLESTEROL INCREASED
     Dosage: 20 MG, DAILY
     Dates: start: 20110901, end: 20110901
  2. RAMIPRIL [Concomitant]
     Indication: HYPERTENSION
     Dosage: 10 MG, DAILY

REACTIONS (4)
  - THROAT TIGHTNESS [None]
  - SWOLLEN TONGUE [None]
  - DYSPNOEA [None]
  - AGEUSIA [None]
